FAERS Safety Report 8600681-2 (Version None)
Quarter: 2012Q3

REPORT INFORMATION
  Report Type: 
  Country: None (occurrence: None)
  Receive Date: 20120803
  Receipt Date: 20120723
  Transmission Date: 20120928
  Serious: Yes (Hospitalization)
  Sender: FDA-Public Use
  Company Number: 2012P1050898

PATIENT
  Age: 30 Year
  Sex: Female

DRUGS (1)
  1. ALBENDAZOLE (NO PREF. NAME) [Suspect]
     Indication: INFECTION PARASITIC
     Dosage: 2 TABLETS;QD;PO
     Route: 048
     Dates: start: 20110501, end: 20110501

REACTIONS (2)
  - SOMNOLENCE [None]
  - HEPATITIS [None]
